FAERS Safety Report 8614925-4 (Version None)
Quarter: 2012Q3

REPORT INFORMATION
  Report Type: 
  Country: None (occurrence: None)
  Receive Date: 20120823
  Receipt Date: 20120815
  Transmission Date: 20120928
  Serious: Yes (Other)
  Sender: FDA-Public Use
  Company Number: US-PERRIGO-12US007150

PATIENT
  Age: 28 Year
  Sex: Female

DRUGS (2)
  1. NAPROXEN SODIUM [Suspect]
     Dosage: 880 MG, SINGLE
     Route: 048
     Dates: start: 20120815, end: 20120815
  2. NAPROXEN SODIUM [Suspect]
     Indication: ACCIDENTAL EXPOSURE
     Dosage: 660 MG, EVERY THREE HOURS
     Route: 048
     Dates: start: 20120814, end: 20120815

REACTIONS (1)
  - ACCIDENTAL OVERDOSE [None]
